FAERS Safety Report 12582174 (Version 1)
Quarter: 2016Q3

REPORT INFORMATION
  Report Type: Spontaneous
  Country: US (occurrence: None)
  Receive Date: 20160721
  Receipt Date: 20160721
  Transmission Date: 20161109
  Serious: Yes (Other)
  Sender: FDA-Public Use
  Company Number: None

PATIENT
  Age: 50 Year
  Sex: Female
  Weight: 95.26 kg

DRUGS (23)
  1. HCTZ [Concomitant]
     Active Substance: HYDROCHLOROTHIAZIDE
  2. GRAPEFRUIT. [Concomitant]
     Active Substance: GRAPEFRUIT
  3. LANTUS [Concomitant]
     Active Substance: INSULIN GLARGINE
  4. MONO [Concomitant]
  5. PEPPERMINT. [Concomitant]
     Active Substance: PEPPERMINT
  6. METOPROLOL. [Concomitant]
     Active Substance: METOPROLOL
  7. BYDUREON [Concomitant]
     Active Substance: EXENATIDE
  8. COQ10 [Concomitant]
     Active Substance: UBIDECARENONE
  9. BABY ASPIRIN [Concomitant]
     Active Substance: ASPIRIN
  10. PROBIOTICS [Concomitant]
     Active Substance: PROBIOTICS NOS
  11. PHYTIESTROGEN COMPLEX [Concomitant]
  12. ESSENTIAL OILS-LEMON [Concomitant]
  13. METOPROLOL TART 50MG TAB CAR, 50 MG SUN PHARMACUTIACLS [Suspect]
     Active Substance: METOPROLOL TARTRATE
     Indication: HYPERTENSION
     Route: 048
     Dates: start: 20160706, end: 20160718
  14. KLOR-CON [Concomitant]
     Active Substance: POTASSIUM CHLORIDE
  15. L5-HTP [Concomitant]
  16. METOPROLOL TART 50MG TAB CAR, 50 MG SUN PHARMACUTIACLS [Suspect]
     Active Substance: METOPROLOL TARTRATE
     Indication: HEART RATE IRREGULAR
     Route: 048
     Dates: start: 20160706, end: 20160718
  17. ISOSORBIDE. [Concomitant]
     Active Substance: ISOSORBIDE
  18. MULTI-VITAMIN [Concomitant]
     Active Substance: .ALPHA.-TOCOPHEROL ACETATE, DL-\ASCORBIC ACID\CYANOCOBALAMIN\FLUORIDE ION\FOLIC ACID\NIACIN\PYRIDOXINE\RIBOFLAVIN\THIAMINE\VITAMIN A\VITAMIN D
  19. NOVOLOG [Concomitant]
     Active Substance: INSULIN ASPART
  20. METFORMIN [Concomitant]
     Active Substance: METFORMIN HYDROCHLORIDE
  21. PLAVIX [Concomitant]
     Active Substance: CLOPIDOGREL BISULFATE
  22. ATORVOSTATIN [Concomitant]
     Active Substance: ATORVASTATIN
  23. GINGER. [Concomitant]
     Active Substance: GINGER

REACTIONS (6)
  - Product odour abnormal [None]
  - Dysgeusia [None]
  - Sensory disturbance [None]
  - Product substitution issue [None]
  - Malaise [None]
  - Dizziness [None]

NARRATIVE: CASE EVENT DATE: 20160718
